FAERS Safety Report 7300778-3 (Version None)
Quarter: 2011Q1

REPORT INFORMATION
  Report Type: 
  Country: None (occurrence: None)
  Receive Date: 20110103
  Receipt Date: 20100827
  Transmission Date: 20110831
  Serious: Yes (Other)
  Sender: FDA-Public Use
  Company Number: US-005130

PATIENT
  Age: 35 Year
  Sex: Male
  Weight: 102 kg

DRUGS (3)
  1. CELEXA [Concomitant]
  2. MULTIHANCE [Suspect]
     Indication: NUCLEAR MAGNETIC RESONANCE IMAGING ABDOMINAL
     Dosage: 20ML ONCE INTRAVENOUS BOLUS
     Route: 040
     Dates: start: 20100827, end: 20100827
  3. MULTIHANCE [Suspect]
     Indication: CHOLANGITIS SCLEROSING
     Dosage: 20ML ONCE INTRAVENOUS BOLUS
     Route: 040
     Dates: start: 20100827, end: 20100827

REACTIONS (1)
  - ANAPHYLACTIC REACTION [None]
